FAERS Safety Report 10248811 (Version 1)
Quarter: 2014Q2

REPORT INFORMATION
  Report Type: Spontaneous
  Country: GB (occurrence: GB)
  Receive Date: 20140620
  Receipt Date: 20140620
  Transmission Date: 20141212
  Serious: Yes (Life-Threatening, Hospitalization)
  Sender: FDA-Public Use
  Company Number: GB-MYLANLABS-2014S1013711

PATIENT
  Age: 21 Month
  Sex: Female
  Weight: 11 kg

DRUGS (3)
  1. IBUPROFEN [Suspect]
     Indication: PYREXIA
     Dosage: 50-100MG THREE TIMES DAILY.
     Route: 048
  2. MOVICOL [Concomitant]
  3. LACTULOSE [Concomitant]

REACTIONS (1)
  - Necrotising fasciitis [Recovered/Resolved with Sequelae]
